FAERS Safety Report 9208969 (Version 1)
Quarter: 2013Q2

REPORT INFORMATION
  Report Type: Spontaneous
  Country: US (occurrence: US)
  Receive Date: 20130404
  Receipt Date: 20130404
  Transmission Date: 20140414
  Serious: Yes (Hospitalization)
  Sender: FDA-Public Use
  Company Number: US-GENZYME-THYM-1003727

PATIENT
  Age: 38 Year
  Sex: Male

DRUGS (4)
  1. THYMOGLOBULIN [Suspect]
     Indication: APLASTIC ANAEMIA
     Dosage: UNK
     Route: 065
     Dates: start: 201302
  2. CYCLOSPORIN [Concomitant]
     Indication: APLASTIC ANAEMIA
     Dosage: UNK
     Route: 065
     Dates: start: 201302
  3. RED BLOOD CELLS [Concomitant]
     Indication: APLASTIC ANAEMIA
     Dosage: 10 U, UNK
     Route: 065
     Dates: start: 20130218
  4. WHITE BLOOD CELLS [Concomitant]
     Indication: APLASTIC ANAEMIA
     Dosage: 1 U, UNK
     Route: 065
     Dates: start: 20130218

REACTIONS (1)
  - Adverse drug reaction [Unknown]
